FAERS Safety Report 19932709 (Version 1)
Quarter: 2021Q4

REPORT INFORMATION
  Report Type: Spontaneous
  Country: US (occurrence: US)
  Receive Date: 20211007
  Receipt Date: 20211007
  Transmission Date: 20220304
  Serious: Yes (Other)
  Sender: FDA-Public Use
  Company Number: None

PATIENT
  Age: 41 Year
  Sex: Male
  Weight: 76.05 kg

DRUGS (2)
  1. BUPROPION [Suspect]
     Active Substance: BUPROPION
     Indication: Depression
     Dosage: ?          QUANTITY:1 TABLET(S);
     Route: 048
     Dates: start: 20210929, end: 20211007
  2. FLONASE [Concomitant]
     Active Substance: FLUTICASONE PROPIONATE

REACTIONS (7)
  - Bradyphrenia [None]
  - Depression [None]
  - Feeling jittery [None]
  - Mood swings [None]
  - Irritability [None]
  - Product quality issue [None]
  - Product quality issue [None]

NARRATIVE: CASE EVENT DATE: 20210929
